FAERS Safety Report 17731305 (Version 1)
Quarter: 2020Q2

REPORT INFORMATION
  Report Type: Spontaneous
  Country: US (occurrence: US)
  Receive Date: 20200430
  Receipt Date: 20200430
  Transmission Date: 20200714
  Serious: Yes (Death)
  Sender: FDA-Public Use
  Company Number: US-BIOGEN-2020BI00869730

PATIENT
  Age: 32 Year
  Sex: Female

DRUGS (3)
  1. TYSABRI [Suspect]
     Active Substance: NATALIZUMAB
     Indication: MULTIPLE SCLEROSIS
     Dosage: 57 TREATMENTS, 4 YEARS OF NTZ THERAPY
     Route: 065
     Dates: start: 2012, end: 2016
  2. ALEMTUZUMAB [Suspect]
     Active Substance: ALEMTUZUMAB
     Dosage: SECOND COURSE, 3 DAYS
     Route: 065
     Dates: start: 20170519
  3. ALEMTUZUMAB [Suspect]
     Active Substance: ALEMTUZUMAB
     Indication: MULTIPLE SCLEROSIS
     Dosage: 5 DAY COURSE
     Route: 065
     Dates: start: 20160328

REACTIONS (2)
  - Multiple sclerosis [Unknown]
  - Thrombocytopenic purpura [Fatal]

NARRATIVE: CASE EVENT DATE: 2016
